FAERS Safety Report 8879422 (Version 1)
Quarter: 2012Q4

REPORT INFORMATION
  Report Type: Report from Study
  Country: US (occurrence: US)
  Receive Date: 20121031
  Receipt Date: 20121031
  Transmission Date: 20130627
  Serious: Yes (Hospitalization)
  Sender: FDA-Public Use
  Company Number: US-BAXTER-2012BAX021068

PATIENT
  Age: 67 Year

DRUGS (1)
  1. CYTOXAN [Suspect]
     Indication: STEM CELL MOBILIZATION
     Route: 065

REACTIONS (3)
  - Confusional state [Recovering/Resolving]
  - Dehydration [Recovering/Resolving]
  - Infection [None]
